FAERS Safety Report 23585785 (Version 2)
Quarter: 2024Q1

REPORT INFORMATION
  Report Type: Spontaneous
  Country: BA (occurrence: BA)
  Receive Date: 20240301
  Receipt Date: 20240311
  Transmission Date: 20240410
  Serious: Yes (Life-Threatening, Other)
  Sender: FDA-Public Use
  Company Number: BA-SA-SAC20240229001239

PATIENT
  Age: 65 Year
  Sex: Female

DRUGS (4)
  1. ENOXAPARIN SODIUM [Suspect]
     Active Substance: ENOXAPARIN SODIUM
     Indication: Deep vein thrombosis
     Dosage: 20 MG, QD
     Route: 058
     Dates: start: 20240219, end: 20240221
  2. PAROXETINE HYDROCHLORIDE [Concomitant]
     Active Substance: PAROXETINE HYDROCHLORIDE\PAROXETINE HYDROCHLORIDE ANHYDROUS
     Indication: Depression
     Dosage: 30 MG, QD
     Route: 048
  3. MELCAM [Concomitant]
     Indication: Osteoarthritis
     Dosage: 15 MG, QD
     Route: 048
  4. SKOPRYL PLUS [Concomitant]
     Indication: Hypertension
     Dosage: 2012.5 MG, QD
     Route: 048

REACTIONS (6)
  - Pulmonary embolism [Recovering/Resolving]
  - Dyspnoea [Recovering/Resolving]
  - Choking [Recovering/Resolving]
  - Hyperhidrosis [Recovering/Resolving]
  - Malaise [Recovering/Resolving]
  - Drug ineffective [Unknown]

NARRATIVE: CASE EVENT DATE: 20240221
